FAERS Safety Report 7404976-X (Version None)
Quarter: 2011Q2

REPORT INFORMATION
  Report Type: 
  Country: None (occurrence: None)
  Receive Date: 20110411
  Receipt Date: 20100601
  Transmission Date: 20111010
  Serious: No
  Sender: FDA-Public Use
  Company Number: US-KINGPHARMUSA00001-K201000781

PATIENT

DRUGS (1)
  1. THROMBIN-JMI [Suspect]
     Indication: EPISTAXIS
     Dosage: 10000 IU, SINGLE
     Route: 045

REACTIONS (1)
  - DRUG INEFFECTIVE [None]
